FAERS Safety Report 4903592-9 (Version None)
Quarter: 2006Q1

REPORT INFORMATION
  Report Type: 
  Country: None (occurrence: None)
  Receive Date: 20060203
  Receipt Date: 20060124
  Transmission Date: 20060701
  Serious: Yes (Death)
  Sender: FDA-Public Use
  Company Number: HQWYE368416JAN06

PATIENT
  Age: 73 Year
  Sex: Male

DRUGS (13)
  1. CORDARONE [Suspect]
     Indication: VENTRICULAR FIBRILLATION
     Dosage: 200 MG 1X PER 1 DAY, ORAL
     Route: 048
     Dates: start: 20041001, end: 20051129
  2. KLACID (CLARITHROMYCIN, ) [Suspect]
     Indication: BRONCHITIS ACUTE
     Dosage: 500 MG 2X PER 1 DAY, ORAL
     Route: 048
     Dates: start: 20051104, end: 20051115
  3. SIMVASTATIN [Suspect]
     Indication: MYOCARDIAL INFARCTION
     Dosage: 20 MG 1X PER 1 DAY, ORAL
     Route: 048
     Dates: start: 20041001, end: 20051119
  4. ERYTHROPOIETIN (ETYTHROPOIETIN) [Concomitant]
  5. MANIDIPINE (MANIDIPINE) [Concomitant]
  6. CALCIUM CARBONATE (CALCIUM CARBONATE) [Concomitant]
  7. CLONIDINE [Concomitant]
  8. MONOKET [Concomitant]
  9. LASIX [Concomitant]
  10. ACETYLSALICYLIC ACID SRT [Concomitant]
  11. ZANEDIP (LERCANIDIPINE HYDROCHLORIDE) [Concomitant]
  12. ESAPENT (OMEGA-3 TRIGLYCERIDE) [Concomitant]
  13. EPHYNAL [Concomitant]

REACTIONS (12)
  - ABASIA [None]
  - BACK PAIN [None]
  - CARDIAC ARREST [None]
  - CONDITION AGGRAVATED [None]
  - DYSPNOEA [None]
  - GAIT DISTURBANCE [None]
  - HYPERAESTHESIA [None]
  - MOVEMENT DISORDER [None]
  - POLYNEUROPATHY [None]
  - RENAL FAILURE CHRONIC [None]
  - RHABDOMYOLYSIS [None]
  - WHITE BLOOD CELL COUNT INCREASED [None]
